FAERS Safety Report 5009098-3 (Version None)
Quarter: 2006Q2

REPORT INFORMATION
  Report Type: 
  Country: None (occurrence: None)
  Receive Date: 20060519
  Receipt Date: 20060509
  Transmission Date: 20061013
  Serious: Yes (Death, Hospitalization)
  Sender: FDA-Public Use
  Company Number: 2006JP000621

PATIENT
  Age: 41 Year
  Sex: Male
  Weight: 37 kg

DRUGS (29)
  1. TACROLIMUS GRANULE (TACROLIMUS) GRANULE [Suspect]
     Indication: HEART TRANSPLANT
     Dosage: SEE IMAGE
     Route: 048
     Dates: start: 20041201, end: 20041201
  2. TACROLIMUS GRANULE (TACROLIMUS) GRANULE [Suspect]
     Indication: HEART TRANSPLANT
     Dosage: SEE IMAGE
     Route: 048
     Dates: start: 20041202, end: 20041205
  3. TACROLIMUS GRANULE (TACROLIMUS) GRANULE [Suspect]
     Indication: HEART TRANSPLANT
     Dosage: SEE IMAGE
     Route: 048
     Dates: start: 20041206, end: 20041206
  4. TACROLIMUS GRANULE (TACROLIMUS) GRANULE [Suspect]
     Indication: HEART TRANSPLANT
     Dosage: SEE IMAGE
     Route: 048
     Dates: start: 20041207, end: 20041207
  5. TACROLIMUS GRANULE (TACROLIMUS) GRANULE [Suspect]
     Indication: HEART TRANSPLANT
     Dosage: SEE IMAGE
     Route: 048
     Dates: start: 20041208, end: 20041208
  6. TACROLIMUS GRANULE (TACROLIMUS) GRANULE [Suspect]
     Indication: HEART TRANSPLANT
     Dosage: SEE IMAGE
     Route: 048
     Dates: start: 20041209, end: 20041214
  7. TACROLIMUS GRANULE (TACROLIMUS) GRANULE [Suspect]
     Indication: HEART TRANSPLANT
     Dosage: SEE IMAGE
     Route: 048
     Dates: start: 20041215, end: 20041217
  8. TACROLIMUS GRANULE (TACROLIMUS) GRANULE [Suspect]
     Indication: HEART TRANSPLANT
     Dosage: SEE IMAGE
     Route: 048
     Dates: start: 20041218, end: 20041218
  9. TACROLIMUS GRANULE (TACROLIMUS) GRANULE [Suspect]
     Indication: HEART TRANSPLANT
     Dosage: SEE IMAGE
     Route: 048
     Dates: start: 20041219, end: 20050103
  10. TACROLIMUS GRANULE (TACROLIMUS) GRANULE [Suspect]
     Indication: HEART TRANSPLANT
     Dosage: SEE IMAGE
     Route: 048
     Dates: start: 20050104, end: 20050206
  11. TACROLIMUS GRANULE (TACROLIMUS) GRANULE [Suspect]
     Indication: HEART TRANSPLANT
     Dosage: SEE IMAGE
     Route: 048
     Dates: start: 20050208, end: 20050208
  12. TACROLIMUS GRANULE (TACROLIMUS) GRANULE [Suspect]
     Indication: HEART TRANSPLANT
     Dosage: SEE IMAGE
     Route: 048
     Dates: start: 20050208, end: 20050208
  13. TACROLIMUS GRANULE (TACROLIMUS) GRANULE [Suspect]
     Indication: HEART TRANSPLANT
     Dosage: SEE IMAGE
     Route: 048
     Dates: start: 20050209, end: 20050301
  14. TACROLIMUS GRANULE (TACROLIMUS) GRANULE [Suspect]
     Indication: HEART TRANSPLANT
     Dosage: SEE IMAGE
     Route: 048
     Dates: end: 20050316
  15. CELLCEPT [Suspect]
     Dosage: SEE IMAGE
     Route: 048
     Dates: start: 20041122, end: 20041122
  16. CELLCEPT [Suspect]
     Dosage: SEE IMAGE
     Route: 048
     Dates: start: 20041123, end: 20041126
  17. CELLCEPT [Suspect]
     Dosage: SEE IMAGE
     Route: 048
     Dates: start: 20041127, end: 20041130
  18. CELLCEPT [Suspect]
     Dosage: SEE IMAGE
     Route: 048
     Dates: start: 20041206, end: 20041206
  19. CELLCEPT [Suspect]
     Dosage: SEE IMAGE
     Route: 048
     Dates: start: 20041207, end: 20041211
  20. CELLCEPT [Suspect]
     Dosage: SEE IMAGE
     Route: 048
     Dates: start: 20041212, end: 20041216
  21. CELLCEPT [Suspect]
     Dosage: SEE IMAGE
     Route: 048
     Dates: start: 20041217, end: 20041217
  22. CELLCEPT [Suspect]
     Dosage: SEE IMAGE
     Route: 048
     Dates: start: 20041218, end: 20041218
  23. CELLCEPT [Suspect]
     Dosage: SEE IMAGE
     Route: 048
     Dates: start: 20041219, end: 20050315
  24. PREDNISOLONE [Suspect]
     Dosage: 20 MG, ORAL
     Route: 048
     Dates: start: 20041126, end: 20041219
  25. PREDNISOLONE [Suspect]
     Dosage: 20 MG, ORAL
     Route: 048
     Dates: start: 20041220, end: 20050316
  26. RITUXAN [Suspect]
     Dosage: 500 MG, D, IV NOS
     Route: 042
     Dates: start: 20041201, end: 20041202
  27. CYCLOPHOSPHAMIDE [Suspect]
     Dosage: 325 MG, D, IV NOS
     Route: 042
     Dates: start: 20041201, end: 20041204
  28. LYMPHOGLOBULINE(ANTITHYMOCYTE IMMUNOGLOBULIN) INJECTION [Suspect]
     Dosage: 400 UG, D, IV NOS
     Route: 042
     Dates: start: 20041121, end: 20041129
  29. DOPAMINE (DOPAMINE) INJECTION [Concomitant]

REACTIONS (3)
  - CANDIDA PNEUMONIA [None]
  - HERPES VIRUS INFECTION [None]
  - PNEUMONIA ASPIRATION [None]
